FAERS Safety Report 7127906-7 (Version None)
Quarter: 2010Q4

REPORT INFORMATION
  Report Type: 
  Country: None (occurrence: None)
  Receive Date: 20101130
  Receipt Date: 20101118
  Transmission Date: 20110411
  Serious: Yes (Hospitalization, Other)
  Sender: FDA-Public Use
  Company Number: FR-JNJFOC-20100906285

PATIENT
  Age: 38 Year
  Sex: Female

DRUGS (4)
  1. REMICADE [Suspect]
     Indication: COLITIS ULCERATIVE
     Route: 042
  2. REMICADE [Suspect]
     Route: 042
  3. REMICADE [Suspect]
     Route: 042
  4. REMICADE [Suspect]
     Route: 042

REACTIONS (7)
  - ALOPECIA [None]
  - ARTHRITIS [None]
  - BREAST MASS [None]
  - COLITIS ULCERATIVE [None]
  - FAECAL INCONTINENCE [None]
  - PRURITUS [None]
  - PUSTULAR PSORIASIS [None]
